FAERS Safety Report 8610021 (Version 3)
Quarter: 2012Q4

REPORT INFORMATION
  Report Type: 
  Country: IN (occurrence: IN)
  Receive Date: 20120612
  Receipt Date: 20120914
  Transmission Date: 20130627
  Serious: Yes (Death, Other)
  Sender: FDA-Public Use
  Company Number: PHHY2012IN049737

PATIENT
  Age: 58 Year
  Sex: Male

DRUGS (1)
  1. SEBIVO [Suspect]
     Dosage: 600 mg
     Route: 048

REACTIONS (5)
  - Death [Fatal]
  - Pyrexia [Unknown]
  - Vomiting [Unknown]
  - Allergic cough [Unknown]
  - Toothache [Unknown]
